FAERS Safety Report 24602166 (Version 3)
Quarter: 2024Q4

REPORT INFORMATION
  Report Type: Report from Study
  Country: US (occurrence: US)
  Receive Date: 20241111
  Receipt Date: 20241203
  Transmission Date: 20250115
  Serious: No
  Sender: ROCHE
  Company Number: US-ROCHE-10000122384

PATIENT
  Age: 66 Year
  Sex: Female
  Weight: 86.2 kg

DRUGS (21)
  1. OCREVUS [Suspect]
     Active Substance: OCRELIZUMAB
     Indication: Multiple sclerosis
     Dosage: MORE DOSAGE INFORMATION IS 300 MG SINGLE-USE VIAL
     Route: 042
  2. METHYLPREDNISOLONE [Concomitant]
     Active Substance: METHYLPREDNISOLONE
  3. DIPHENHYDRAMINE [Concomitant]
     Active Substance: DIPHENHYDRAMINE
  4. ACETAMINOPHEN [Concomitant]
     Active Substance: ACETAMINOPHEN
  5. TYLENOL [Concomitant]
     Active Substance: ACETAMINOPHEN
  6. ALBUTEROL [Concomitant]
     Active Substance: ALBUTEROL
  7. TENORMIN [Concomitant]
     Active Substance: ATENOLOL
  8. CALCIUM CARBONATE\CHOLECALCIFEROL [Concomitant]
     Active Substance: CALCIUM CARBONATE\CHOLECALCIFEROL
  9. CARBATROL [Concomitant]
     Active Substance: CARBAMAZEPINE
  10. ERGOCALCIFEROL [Concomitant]
     Active Substance: ERGOCALCIFEROL
  11. FLONASE [Concomitant]
     Active Substance: FLUTICASONE PROPIONATE
  12. LASIX [Concomitant]
     Active Substance: FUROSEMIDE
  13. NEURONTIN [Concomitant]
     Active Substance: GABAPENTIN
  14. LEVOTHYROXINE [Concomitant]
     Active Substance: LEVOTHYROXINE
  15. MYRBETRIQ [Concomitant]
     Active Substance: MIRABEGRON
  16. MYCOSTATIN [Concomitant]
     Active Substance: NYSTATIN
  17. PRILOSEC [Concomitant]
     Active Substance: OMEPRAZOLE MAGNESIUM
  18. MICRO K [Concomitant]
  19. MIRAPEX [Concomitant]
     Active Substance: PRAMIPEXOLE DIHYDROCHLORIDE
  20. PRAVACHOL [Concomitant]
     Active Substance: PRAVASTATIN SODIUM
  21. EFFEXOR XR [Concomitant]
     Active Substance: VENLAFAXINE HYDROCHLORIDE

REACTIONS (43)
  - Pain [Unknown]
  - COVID-19 [Unknown]
  - Nasopharyngitis [Unknown]
  - Painful respiration [Unknown]
  - Cognitive disorder [Unknown]
  - Depression [Unknown]
  - Muscular weakness [Unknown]
  - Muscular weakness [Unknown]
  - Peroneal nerve palsy [Unknown]
  - Muscle spasticity [Unknown]
  - Band sensation [Unknown]
  - Sensory loss [Unknown]
  - Fall [Unknown]
  - Lhermitte^s sign [Unknown]
  - Uhthoff^s phenomenon [Unknown]
  - Muscle contracture [Unknown]
  - Sleep disorder [Unknown]
  - Micturition urgency [Unknown]
  - Urinary incontinence [Unknown]
  - Hypoaesthesia [Unknown]
  - Gait disturbance [Unknown]
  - Haemoglobin decreased [Unknown]
  - Mean cell volume decreased [Unknown]
  - Blood cholesterol increased [Unknown]
  - Blood triglycerides increased [Unknown]
  - Low density lipoprotein increased [Unknown]
  - Blood phosphorus decreased [Unknown]
  - Blood thyroid stimulating hormone decreased [Unknown]
  - Blood creatine phosphokinase increased [Unknown]
  - Mobility decreased [Unknown]
  - Paranasal cyst [Unknown]
  - Spinal osteoarthritis [Unknown]
  - CD19 lymphocytes decreased [Unknown]
  - Pulse abnormal [Unknown]
  - Sensory loss [Unknown]
  - Memory impairment [Unknown]
  - Presyncope [Unknown]
  - Confusional state [Unknown]
  - Dizziness [Unknown]
  - Vertigo [Unknown]
  - Headache [Unknown]
  - Neck pain [Unknown]
  - Muscle spasms [Unknown]
